FAERS Safety Report 19979987 (Version 1)
Quarter: 2021Q4

REPORT INFORMATION
  Report Type: Spontaneous
  Country: US (occurrence: US)
  Receive Date: 20211021
  Receipt Date: 20211021
  Transmission Date: 20220304
  Serious: Yes (Life-Threatening, Hospitalization)
  Sender: FDA-Public Use
  Company Number: US-MYLANLABS-2021M1073828

PATIENT
  Age: 29 Year
  Sex: Male

DRUGS (1)
  1. NALOXONE [Suspect]
     Active Substance: NALOXONE
     Indication: Unresponsive to stimuli
     Dosage: 1 MILLIGRAM
     Route: 042

REACTIONS (2)
  - Non-cardiogenic pulmonary oedema [Recovering/Resolving]
  - Acute respiratory distress syndrome [Recovering/Resolving]
